FAERS Safety Report 24723109 (Version 1)
Quarter: 2024Q4

REPORT INFORMATION
  Report Type: Spontaneous
  Country: US (occurrence: None)
  Receive Date: 20241211
  Receipt Date: 20241211
  Transmission Date: 20250115
  Serious: Yes (Hospitalization)
  Sender: Public
  Company Number: None

PATIENT
  Age: 93 Year
  Sex: Male

DRUGS (1)
  1. POMALYST [Suspect]
     Active Substance: POMALIDOMIDE
     Indication: Kaposi^s sarcoma
     Dosage: FREQUENCY : DAILY;?
     Route: 048
     Dates: start: 20241008, end: 20241015

REACTIONS (3)
  - Nausea [None]
  - Pneumonia [None]
  - Decreased appetite [None]

NARRATIVE: CASE EVENT DATE: 20241211
